FAERS Safety Report 5029982-4 (Version None)
Quarter: 2006Q2

REPORT INFORMATION
  Report Type: 
  Country: None (occurrence: None)
  Receive Date: 20060614
  Receipt Date: 20060526
  Transmission Date: 20061013
  Serious: Yes (Death, Hospitalization)
  Sender: FDA-Public Use
  Company Number: US200605002090

PATIENT
  Age: 80 Year
  Sex: Male
  Weight: 80 kg

DRUGS (3)
  1. PEMETREXED (PEMETREXED) VIAL [Suspect]
     Indication: PLEURAL MESOTHELIOMA
     Dosage: 500 MG/M2, OTHER, INTRAVENOUS
     Route: 042
     Dates: start: 20050920, end: 20051207
  2. CISPLATIN PHARMACIA(CISPLATIN PHARMACIA) [Suspect]
     Indication: PLEURAL MESOTHELIOMA
     Dosage: 75 MG/M2, OTHER, INTRAVENOUS
     Route: 042
     Dates: start: 20050920, end: 20051207
  3. RADIATION(RADIATION) [Suspect]
     Indication: PLEURAL MESOTHELIOMA
     Dosage: 1.8
     Dates: start: 20060306

REACTIONS (4)
  - MYOCARDIAL INFARCTION [None]
  - PULMONARY EMBOLISM [None]
  - RADIATION PNEUMONITIS [None]
  - SUDDEN DEATH [None]
